FAERS Safety Report 7100808-8 (Version None)
Quarter: 2010Q4

REPORT INFORMATION
  Report Type: 
  Country: None (occurrence: None)
  Receive Date: 20101113
  Receipt Date: 20100315
  Transmission Date: 20110411
  Serious: No
  Sender: FDA-Public Use
  Company Number: US-ALLERGAN-1003427US

PATIENT

DRUGS (3)
  1. BOTOX COSMETIC [Suspect]
     Indication: SKIN WRINKLING
     Dosage: 64 UNITS, SINGLE
     Route: 030
  2. LATISSE [Concomitant]
  3. JUVEDERM [Concomitant]

REACTIONS (2)
  - CORNEAL ABRASION [None]
  - KERATITIS [None]
